FAERS Safety Report 8815990 (Version 1)
Quarter: 2012Q4

REPORT INFORMATION
  Report Type: 
  Country: US (occurrence: US)
  Receive Date: 20120928
  Receipt Date: 20120928
  Transmission Date: 20130627
  Serious: No
  Sender: FDA-Public Use
  Company Number: US-VIIV HEALTHCARE LIMITED-A0960217A

PATIENT
  Age: 60 Year
  Sex: Female
  Weight: 76.4 kg

DRUGS (6)
  1. EPZICOM [Suspect]
     Indication: HIV INFECTION
     Dosage: 1TAB Per day
     Route: 048
  2. MAXZIDE [Concomitant]
  3. ASPIRIN [Concomitant]
  4. NORVASC [Concomitant]
  5. GLUCOPHAGE [Concomitant]
  6. VIRAMUNE [Concomitant]
     Dosage: 400MG Per day

REACTIONS (3)
  - Medication residue [Unknown]
  - Product quality issue [Unknown]
  - Drug administration error [Unknown]
